FAERS Safety Report 16831341 (Version 4)
Quarter: 2020Q1

REPORT INFORMATION
  Report Type: Report from Study
  Country: CN (occurrence: CN)
  Receive Date: 20190920
  Receipt Date: 20200305
  Transmission Date: 20200409
  Serious: Yes (Hospitalization, Other)
  Sender: FDA-Public Use
  Company Number: CN-ROCHE-1996822

PATIENT
  Age: 73 Year
  Sex: Male
  Weight: 60 kg

DRUGS (1)
  1. AVASTIN [Suspect]
     Active Substance: BEVACIZUMAB
     Indication: NON-SMALL CELL LUNG CANCER
     Route: 041
     Dates: start: 20170527, end: 20191231

REACTIONS (6)
  - Protein urine present [Not Recovered/Not Resolved]
  - Urticaria [Unknown]
  - Cerebral infarction [Unknown]
  - Haemoptysis [Unknown]
  - Discomfort [Unknown]
  - Pneumonia [Recovering/Resolving]

NARRATIVE: CASE EVENT DATE: 20190903
